FAERS Safety Report 19760461 (Version 13)
Quarter: 2022Q4

REPORT INFORMATION
  Report Type: Spontaneous
  Country: DE (occurrence: DE)
  Receive Date: 20210830
  Receipt Date: 20221217
  Transmission Date: 20230113
  Serious: Yes (Hospitalization, Other)
  Sender: FDA-Public Use
  Company Number: NVSC2020DE269502

PATIENT
  Age: 44 Year
  Sex: Female
  Weight: 65 kg

DRUGS (23)
  1. OXYCODONE [Suspect]
     Active Substance: OXYCODONE
     Indication: Pain
     Dosage: 20 MG (0.5 DAY, 20 MG, 2X/DAY)
     Route: 065
     Dates: end: 20210513
  2. OXYCODONE [Suspect]
     Active Substance: OXYCODONE
     Dosage: 10 MG (0.5 DAY (TOGETHER WITH NALOXON))
     Route: 065
  3. OXYCODONE [Suspect]
     Active Substance: OXYCODONE
     Dosage: 5 MG, QD (1-0-0)
     Route: 065
  4. PANTOPRAZOLE [Suspect]
     Active Substance: PANTOPRAZOLE
     Indication: Product used for unknown indication
     Dosage: 20 MG (2 UNITS UPTO 3X/DAY, BID)
     Route: 065
  5. CORTISONE [Suspect]
     Active Substance: CORTISONE
     Indication: Product used for unknown indication
     Dosage: 3000 MG, QD (1000 MG, 3X/DAY)
     Route: 065
  6. NABIXIMOLS [Suspect]
     Active Substance: NABIXIMOLS
     Indication: Product used for unknown indication
     Dosage: 2 DOSAGE FORM (2-2-2, 2 PUFFS EACH)
     Route: 065
     Dates: start: 202007
  7. NALOXONE HYDROCHLORIDE [Suspect]
     Active Substance: NALOXONE HYDROCHLORIDE
     Indication: Product used for unknown indication
     Dosage: 5 MG (TOGETHER WITH OXYCODON 2X/DAY)
     Route: 065
     Dates: end: 20210513
  8. NALOXONE HYDROCHLORIDE [Suspect]
     Active Substance: NALOXONE HYDROCHLORIDE
     Dosage: 2.5 MG, QD (1-0-0, 2.5 MG, 1X/DAY)
     Route: 065
  9. HYDROCORTISONE [Suspect]
     Active Substance: HYDROCORTISONE
     Indication: Product used for unknown indication
     Dosage: UNK
     Route: 065
  10. DESOGESTREL [Concomitant]
     Active Substance: DESOGESTREL
     Indication: Product used for unknown indication
     Dosage: UNK
     Route: 065
  11. ACETAMINOPHEN [Concomitant]
     Active Substance: ACETAMINOPHEN
     Indication: Product used for unknown indication
     Dosage: UNK, TID (UP TO 3 TIMES PER DAY)
     Route: 065
  12. MIRTAZAPINE [Concomitant]
     Active Substance: MIRTAZAPINE
     Indication: Product used for unknown indication
     Dosage: 7.5 MG
     Route: 065
  13. PREGABALIN [Concomitant]
     Active Substance: PREGABALIN
     Indication: Pain
     Dosage: 600 MG, QD (200 MG, 3X/DAY)
     Route: 048
     Dates: start: 2019
  14. PREGABALIN [Concomitant]
     Active Substance: PREGABALIN
     Dosage: 200 MG (FREQ: 0.33 DAY)
     Route: 065
  15. PREGABALIN [Concomitant]
     Active Substance: PREGABALIN
     Dosage: 100 MG 2-2-2
     Route: 065
  16. PREGABALIN [Concomitant]
     Active Substance: PREGABALIN
     Dosage: 600 MG
     Route: 065
  17. AMITRIPTYLINE [Concomitant]
     Active Substance: AMITRIPTYLINE
     Indication: Pain
     Dosage: 25 MG, QD (1X/DAY )
     Route: 048
     Dates: start: 2019
  18. AMITRIPTYLINE [Concomitant]
     Active Substance: AMITRIPTYLINE
     Dosage: 25 MG, QD (0-0-1)
     Route: 065
  19. AMITRIPTYLINE [Concomitant]
     Active Substance: AMITRIPTYLINE
     Dosage: 50 MG, QD (0-0-1)
     Route: 065
  20. MOVICOL [Concomitant]
     Active Substance: POLYETHYLENE GLYCOL 3350\POTASSIUM CHLORIDE\SODIUM BICARBONATE\SODIUM CHLORIDE
     Indication: Product used for unknown indication
     Dosage: UNK UNK, QD (1-0-0, 1X/DAY)
     Route: 065
  21. DULOXETINE [Concomitant]
     Active Substance: DULOXETINE
     Indication: Product used for unknown indication
     Dosage: 30 MG, BID (1-0-1)
     Route: 065
  22. METAMIZOLE [Concomitant]
     Active Substance: METAMIZOLE
     Indication: Product used for unknown indication
     Dosage: 500 MG
     Route: 065
  23. MAGNESIUM [Concomitant]
     Active Substance: MAGNESIUM
     Indication: Product used for unknown indication
     Dosage: 400 MG
     Route: 065

REACTIONS (72)
  - Multiple sclerosis relapse [Recovering/Resolving]
  - Loss of consciousness [Not Recovered/Not Resolved]
  - Constipation [Recovered/Resolved]
  - Fatigue [Recovered/Resolved]
  - Fatigue [Recovered/Resolved]
  - Fatigue [Recovered/Resolved]
  - Fatigue [Recovered/Resolved]
  - Fatigue [Recovered/Resolved]
  - Fatigue [Recovered/Resolved]
  - Muscle spasms [Recovered/Resolved]
  - Benign neoplasm of thyroid gland [Not Recovered/Not Resolved]
  - Thyroid mass [Not Recovered/Not Resolved]
  - Chills [Recovered/Resolved]
  - Chills [Recovered/Resolved]
  - Fungal foot infection [Recovered/Resolved]
  - Muscle spasticity [Recovered/Resolved]
  - Vaginal discharge [Unknown]
  - Mood swings [Recovered/Resolved]
  - Head discomfort [Recovered/Resolved]
  - Musculoskeletal stiffness [Recovered/Resolved]
  - Hyperacusis [Recovering/Resolving]
  - Memory impairment [Unknown]
  - Feeling cold [Recovered/Resolved]
  - Menstruation irregular [Unknown]
  - Muscular weakness [Recovered/Resolved]
  - Speech disorder [Recovered/Resolved]
  - Coordination abnormal [Recovered/Resolved]
  - Pain in extremity [Not Recovered/Not Resolved]
  - Back pain [Not Recovered/Not Resolved]
  - Vomiting [Recovered/Resolved]
  - Headache [Recovered/Resolved]
  - Eye pain [Recovering/Resolving]
  - Dry skin [Recovering/Resolving]
  - Pain [Recovering/Resolving]
  - Dysphagia [Recovered/Resolved]
  - Anal incontinence [Recovered/Resolved]
  - Urinary incontinence [Recovered/Resolved]
  - Tongue movement disturbance [Recovering/Resolving]
  - Muscular weakness [Recovering/Resolving]
  - Dyskinesia [Recovered/Resolved]
  - Irritability [Recovering/Resolving]
  - Odynophagia [Recovering/Resolving]
  - Ocular discomfort [Recovering/Resolving]
  - Cognitive disorder [Recovered/Resolved]
  - Dyspnoea [Recovered/Resolved]
  - Sensory disturbance [Recovering/Resolving]
  - Painful respiration [Recovered/Resolved]
  - Asthenia [Recovered/Resolved]
  - Fall [Unknown]
  - Arthralgia [Recovered/Resolved]
  - Tooth injury [Recovered/Resolved]
  - Joint range of motion decreased [Recovered/Resolved]
  - Photophobia [Recovered/Resolved]
  - Acne pustular [Recovered/Resolved]
  - Weight increased [Recovering/Resolving]
  - Nail ridging [Recovering/Resolving]
  - Alopecia [Recovered/Resolved]
  - Photophobia [Recovering/Resolving]
  - Pruritus [Recovering/Resolving]
  - Sleep apnoea syndrome [Recovering/Resolving]
  - Muscle twitching [Recovered/Resolved]
  - Burning sensation [Recovered/Resolved]
  - Confusional state [Not Recovered/Not Resolved]
  - Ill-defined disorder [Unknown]
  - COVID-19 [Recovered/Resolved]
  - Arthropod bite [Unknown]
  - Productive cough [Recovered/Resolved]
  - Speech disorder [Recovering/Resolving]
  - Pelvic pain [Not Recovered/Not Resolved]
  - Musculoskeletal pain [Not Recovered/Not Resolved]
  - Intentional product use issue [Unknown]
  - Off label use [Unknown]

NARRATIVE: CASE EVENT DATE: 20200206
